FAERS Safety Report 5155241-5 (Version None)
Quarter: 2006Q4

REPORT INFORMATION
  Report Type: 
  Country: None (occurrence: None)
  Receive Date: 20061121
  Receipt Date: 20061108
  Transmission Date: 20070319
  Serious: Yes (Hospitalization)
  Sender: FDA-Public Use
  Company Number: DE-BRISTOL-MYERS SQUIBB COMPANY-13579313

PATIENT
  Age: 65 Year
  Sex: Female

DRUGS (5)
  1. ENDOXAN [Suspect]
     Indication: BREAST CANCER
     Dates: start: 20060920, end: 20060920
  2. EPIRUBICIN [Suspect]
     Indication: BREAST CANCER
     Dates: start: 20060920, end: 20060920
  3. FLUOROURACIL [Suspect]
     Indication: BREAST CANCER
     Dates: start: 20060920, end: 20060920
  4. SODIUM CHLORIDE [Concomitant]
     Dates: start: 20060920
  5. GLUCOSE [Concomitant]
     Dates: start: 20060920

REACTIONS (1)
  - THROMBOSIS [None]
